FAERS Safety Report 5409315-1 (Version None)
Quarter: 2007Q3

REPORT INFORMATION
  Report Type: 
  Country: None (occurrence: None)
  Receive Date: 20070807
  Receipt Date: 20070726
  Transmission Date: 20080115
  Serious: Yes (Death)
  Sender: FDA-Public Use
  Company Number: GXKR2007CH06448

PATIENT
  Age: 80 Year
  Sex: Female
  Weight: 83 kg

DRUGS (10)
  1. METFIN (NGX)(METFORMIN) UNKNOWN [Suspect]
     Indication: TYPE 2 DIABETES MELLITUS
     Dosage: 1000 MG, BID, ORAL
     Route: 048
     Dates: start: 20070622, end: 20070624
  2. NOVONORM(REPAGLINIDE) [Suspect]
     Indication: TYPE 2 DIABETES MELLITUS
     Dosage: 2 MG, TID, ORAL
     Route: 048
     Dates: start: 20070622, end: 20070624
  3. FLUCONAZOLE [Concomitant]
  4. SINEMET CR [Concomitant]
  5. EXELON [Concomitant]
  6. SEROQUEL [Concomitant]
  7. FOSAMAX [Concomitant]
  8. OMED (OMEPRAZOLE) [Concomitant]
  9. SPIRICORT (PREDNISOLONE) [Concomitant]
  10. CALCIMAGON-D3 (CALCIUM CARBONATE, COLECALCIFEROL) [Concomitant]

REACTIONS (2)
  - HYPOGLYCAEMIC COMA [None]
  - MYOCARDIAL INFARCTION [None]
